FAERS Safety Report 5161759-1 (Version None)
Quarter: 2006Q4

REPORT INFORMATION
  Report Type: 
  Country: None (occurrence: None)
  Receive Date: 20061130
  Receipt Date: 20061127
  Transmission Date: 20070319
  Serious: Yes (Hospitalization)
  Sender: FDA-Public Use
  Company Number: NL-GLAXOSMITHKLINE-B0448759A

PATIENT
  Age: 64 Year
  Sex: Male
  Weight: 100 kg

DRUGS (2)
  1. DUTASTERIDE [Suspect]
     Indication: BENIGN PROSTATIC HYPERPLASIA
     Dosage: .5MG PER DAY
     Dates: start: 20051025, end: 20061101
  2. CIMETIDINE [Suspect]
     Indication: DYSPEPSIA
     Dosage: 200MG TWICE PER DAY
     Dates: start: 19951101, end: 20060927

REACTIONS (1)
  - NIPPLE NEOPLASM [None]
